FAERS Safety Report 22027190 (Version 2)
Quarter: 2023Q1

REPORT INFORMATION
  Report Type: Report from Study
  Country: US (occurrence: None)
  Receive Date: 20230223
  Receipt Date: 20230303
  Transmission Date: 20230417
  Serious: No
  Sender: FDA-Public Use
  Company Number: US-Merck Healthcare KGaA-9385733

PATIENT
  Sex: Male

DRUGS (2)
  1. MAVENCLAD [Suspect]
     Active Substance: CLADRIBINE
     Indication: Multiple sclerosis
     Dosage: YEAR ONE MONTH ONE THERAPY: 20 MG ON DAYS 1 TO 3 AND 10 MG ON DAYS 4 AND 5
     Route: 048
     Dates: start: 20220228, end: 20220304
  2. MAVENCLAD [Suspect]
     Active Substance: CLADRIBINE
     Dosage: YEAR ONE MONTH TWO THERAPY
     Route: 048
     Dates: end: 20220404

REACTIONS (2)
  - Fatigue [Unknown]
  - Malaise [Unknown]
